FAERS Safety Report 16566791 (Version 1)
Quarter: 2019Q3

REPORT INFORMATION
  Report Type: Report from Study
  Country: CA (occurrence: CA)
  Receive Date: 20190712
  Receipt Date: 20190712
  Transmission Date: 20191004
  Serious: Yes (Hospitalization)
  Sender: FDA-Public Use
  Company Number: CA-ACTELION-A-NJ2019-192704

PATIENT
  Age: 69 Year
  Sex: Female
  Weight: 58.96 kg

DRUGS (15)
  1. PANTOPRAZOLE [Concomitant]
     Active Substance: PANTOPRAZOLE
     Dosage: 40 MG, QAM
  2. NOVO-GESIC [Concomitant]
     Dosage: 2 DF (500 MG), QID
  3. SYNTHROID [Concomitant]
     Active Substance: LEVOTHYROXINE SODIUM
     Dosage: 0.100 MG
  4. LOWPRIN [Concomitant]
     Dosage: 80 EC
  5. PREGABALIN. [Concomitant]
     Active Substance: PREGABALIN
     Dosage: 100 MG, QPM
  6. APO-NAPROXEN [Concomitant]
     Active Substance: NAPROXEN
     Dosage: 500 MG, BID
  7. ATIVAN [Concomitant]
     Active Substance: LORAZEPAM
     Dosage: 0.5 MG, QPM
  8. ADCIRCA [Concomitant]
     Active Substance: TADALAFIL
  9. KADIAN [Concomitant]
     Active Substance: MORPHINE SULFATE
     Dosage: 10 MG
  10. CITALOPRAM [Concomitant]
     Active Substance: CITALOPRAM HYDROBROMIDE
     Dosage: 40 MG, QAM
  11. APO-FUROSEMIDE [Concomitant]
     Active Substance: FUROSEMIDE
     Dosage: 3 DF (20 MG), QAM
  12. OPSUMIT [Suspect]
     Active Substance: MACITENTAN
     Indication: PULMONARY ARTERIAL HYPERTENSION
     Dosage: 10 MG
     Route: 048
     Dates: start: 20160920
  13. ALDACTONE [Concomitant]
     Active Substance: SPIRONOLACTONE
  14. ABILIFY [Concomitant]
     Active Substance: ARIPIPRAZOLE
     Dosage: 2 MG, QAM
  15. ADALAT CC [Concomitant]
     Active Substance: NIFEDIPINE
     Dosage: 200 MG, QAM

REACTIONS (3)
  - Viral infection [Recovering/Resolving]
  - Fatigue [Recovering/Resolving]
  - Chills [Recovering/Resolving]

NARRATIVE: CASE EVENT DATE: 20190606
